FAERS Safety Report 10489134 (Version 1)
Quarter: 2014Q4

REPORT INFORMATION
  Report Type: Spontaneous
  Country: SE (occurrence: SE)
  Receive Date: 20141002
  Receipt Date: 20141002
  Transmission Date: 20150528
  Serious: Yes (Hospitalization)
  Sender: FDA-Public Use
  Company Number: SE-ASTRAZENECA-2014SE72539

PATIENT
  Age: 74 Year
  Sex: Female

DRUGS (11)
  1. ENALAPRIL [Concomitant]
     Active Substance: ENALAPRIL
  2. BEHEPAN [Concomitant]
     Active Substance: HYDROXOCOBALAMIN
  3. SIMVASTATIN. [Concomitant]
     Active Substance: SIMVASTATIN
  4. TROMBYL [Concomitant]
     Active Substance: ASPIRIN
  5. INDERAL [Suspect]
     Active Substance: PROPRANOLOL HYDROCHLORIDE
     Route: 048
     Dates: end: 201406
  6. NORMORIX [Concomitant]
  7. FURIX [Concomitant]
     Active Substance: FUROSEMIDE
  8. METFORMIN [Concomitant]
     Active Substance: METFORMIN HYDROCHLORIDE
  9. LANTUS [Concomitant]
     Active Substance: INSULIN GLARGINE
  10. LEVAXIN [Concomitant]
     Active Substance: LEVOTHYROXINE SODIUM
  11. ATENOLOL. [Suspect]
     Active Substance: ATENOLOL
     Route: 048
     Dates: end: 201406

REACTIONS (4)
  - Sinus bradycardia [Unknown]
  - Supraventricular tachycardia [Unknown]
  - Sinus arrest [Unknown]
  - Syncope [Unknown]

NARRATIVE: CASE EVENT DATE: 20140607
